FAERS Safety Report 11868100 (Version 1)
Quarter: 2015Q4

REPORT INFORMATION
  Report Type: Spontaneous
  Country: US (occurrence: None)
  Receive Date: 20151223
  Receipt Date: 20151223
  Transmission Date: 20160305
  Serious: No
  Sender: FDA-Public Use
  Company Number: None

PATIENT
  Age: 42 Year
  Sex: Female
  Weight: 90.72 kg

DRUGS (1)
  1. LIDOCAINE. [Suspect]
     Active Substance: LIDOCAINE
     Indication: BACK PAIN
     Route: 061

REACTIONS (5)
  - Drug ineffective [None]
  - Product quality issue [None]
  - Device issue [None]
  - Product adhesion issue [None]
  - Overdose [None]

NARRATIVE: CASE EVENT DATE: 20151221
